FAERS Safety Report 4705834-1 (Version None)
Quarter: 2005Q2

REPORT INFORMATION
  Report Type: 
  Country: None (occurrence: None)
  Receive Date: 20050629
  Receipt Date: 20050528
  Transmission Date: 20051028
  Serious: Yes (Death, Hospitalization)
  Sender: FDA-Public Use
  Company Number: 05P-163-0299358-00

PATIENT
  Age: 78 Year
  Sex: Male
  Weight: 95.2554 kg

DRUGS (5)
  1. HUMIRA [Suspect]
     Indication: RHEUMATOID ARTHRITIS
     Dosage: 40 MG, 1 IN 2 WK, SUBCUTANEOUS
     Route: 058
     Dates: start: 20040211, end: 20050401
  2. PREDNISONE TAB [Concomitant]
  3. METHOTREXATE [Concomitant]
  4. COUMADIN [Concomitant]
  5. AMIL [Concomitant]

REACTIONS (1)
  - PNEUMONIA [None]
